FAERS Safety Report 10398198 (Version 1)
Quarter: 2014Q1

REPORT INFORMATION
  Report Type: Spontaneous
  Country: US (occurrence: None)
  Receive Date: 20130621
  Receipt Date: 20130621
  Transmission Date: 20141002
  Serious: Yes (Death, Life-Threatening, Hospitalization, Other)
  Sender: FDA-Public Use
  Company Number: 080639

PATIENT
  Sex: Male
  Weight: 66.2 kg

DRUGS (9)
  1. CIMZIA [Suspect]
     Indication: RHEUMATOID ARTHRITIS
     Dosage: 400 MG 1X/4 WEEKS SUBCUTANEOUS
     Route: 058
     Dates: start: 20101001, end: 201302
  2. SOMA [Concomitant]
  3. VALIUM /00017001/ [Concomitant]
  4. LEXAPRO [Concomitant]
  5. PREDNISONE [Concomitant]
  6. ACYCLOVIR /00587301/ [Concomitant]
  7. FOCALIN [Concomitant]
  8. PROMETHAZINE HYDROCHLORIDE [Concomitant]
  9. TAMIFLU /01400101/ [Concomitant]

REACTIONS (7)
  - Influenza [None]
  - Myocardial infarction [None]
  - Respiratory disorder [None]
  - Myalgia [None]
  - Chest pain [None]
  - Asthenia [None]
  - Feeling abnormal [None]
